FAERS Safety Report 13857107 (Version 1)
Quarter: 2017Q3

REPORT INFORMATION
  Report Type: Spontaneous
  Country: US (occurrence: US)
  Receive Date: 20170810
  Receipt Date: 20170810
  Transmission Date: 20171127
  Serious: No
  Sender: FDA-Public Use
  Company Number: US-ROCHE-1182613

PATIENT
  Age: 4 Year
  Sex: Male
  Weight: 18.61 kg

DRUGS (1)
  1. TAMIFLU [Suspect]
     Active Substance: OSELTAMIVIR PHOSPHATE
     Indication: INFLUENZA
     Route: 065
     Dates: start: 201210, end: 201210

REACTIONS (2)
  - Rash [Unknown]
  - Urticaria [Recovered/Resolved]
